FAERS Safety Report 10043363 (Version 1)
Quarter: 2014Q1

REPORT INFORMATION
  Report Type: Spontaneous
  Country: US (occurrence: None)
  Receive Date: 20140327
  Receipt Date: 20140327
  Transmission Date: 20141002
  Serious: Yes (Death, Hospitalization)
  Sender: FDA-Public Use
  Company Number: None

PATIENT
  Age: 76 Year
  Sex: Female
  Weight: 74 kg

DRUGS (1)
  1. PACLITAXEL (TAXOL) [Suspect]

REACTIONS (8)
  - Ejection fraction decreased [None]
  - Cellulitis [None]
  - Drug intolerance [None]
  - Thrombocytopenia [None]
  - Hypoaesthesia [None]
  - Feeling abnormal [None]
  - Coronary artery occlusion [None]
  - Acute myocardial infarction [None]
